FAERS Safety Report 10865108 (Version 1)
Quarter: 2015Q1

REPORT INFORMATION
  Report Type: Report from Study
  Country: MX (occurrence: MX)
  Receive Date: 20150224
  Receipt Date: 20150224
  Transmission Date: 20150721
  Serious: Yes (Death, Hospitalization)
  Sender: FDA-Public Use
  Company Number: PHBS2005MX18809

PATIENT
  Age: 24 Year
  Sex: Male

DRUGS (5)
  1. KEPPRA [Concomitant]
     Active Substance: LEVETIRACETAM
     Indication: PRODUCT USED FOR UNKNOWN INDICATION
     Dosage: UNK UKN, UNK
     Route: 065
  2. TRILEPTAL [Suspect]
     Active Substance: OXCARBAZEPINE
     Indication: EPILEPSY
     Dosage: 900 MG, QD
     Route: 048
     Dates: start: 20030615
  3. TRILEPTAL [Suspect]
     Active Substance: OXCARBAZEPINE
     Indication: PETIT MAL EPILEPSY
     Dosage: 2 DF, QD (TEGRETOL 300 MG, FROM 0.5 TABLET TWICE DAILY TO 2 TABLET DAILY)
     Route: 065
  4. CLOXIN [Concomitant]
     Indication: PRODUCT USED FOR UNKNOWN INDICATION
     Dosage: UNK UKN, UNK
     Route: 065
  5. RISPERDAL [Concomitant]
     Active Substance: RISPERIDONE
     Indication: PRODUCT USED FOR UNKNOWN INDICATION
     Dosage: UNK UKN, UNK
     Route: 065

REACTIONS (6)
  - Memory impairment [Unknown]
  - Seizure [Recovered/Resolved]
  - Vasculitis [Fatal]
  - Nervous system disorder [Unknown]
  - Tongue discolouration [Unknown]
  - Skin exfoliation [Unknown]

NARRATIVE: CASE EVENT DATE: 20050923
